FAERS Safety Report 5707522-1 (Version None)
Quarter: 2008Q2

REPORT INFORMATION
  Report Type: 
  Country: None (occurrence: None)
  Receive Date: 20080416
  Receipt Date: 20080408
  Transmission Date: 20081010
  Serious: Yes (Hospitalization, Other)
  Sender: FDA-Public Use
  Company Number: US-PFIZER INC-2007069625

PATIENT
  Sex: Male
  Weight: 88.5 kg

DRUGS (8)
  1. LIPITOR [Suspect]
     Indication: FAMILIAL RISK FACTOR
     Dates: start: 19970101, end: 20060901
  2. PREDNISONE [Suspect]
  3. SYNTHROID [Concomitant]
  4. KLOR-CON [Concomitant]
  5. PROTONIX [Concomitant]
  6. PROPRANOLOL [Concomitant]
  7. ACETYLSALICYLIC ACID SRT [Concomitant]
     Dosage: FREQ:1 DAILY
  8. IBUPROFEN [Concomitant]

REACTIONS (41)
  - ARTHRITIS [None]
  - ASTHENIA [None]
  - BLOOD CREATINE PHOSPHOKINASE INCREASED [None]
  - BLOOD GLUCOSE DECREASED [None]
  - CHEST PAIN [None]
  - COMA [None]
  - DECREASED APPETITE [None]
  - DYSPNOEA [None]
  - FATIGUE [None]
  - GAIT DISTURBANCE [None]
  - GASTROOESOPHAGEAL REFLUX DISEASE [None]
  - HAEMATOCRIT DECREASED [None]
  - HYPERHIDROSIS [None]
  - HYPERLIPIDAEMIA [None]
  - HYPOTENSION [None]
  - HYPOTHYROIDISM [None]
  - HYPOTONIA [None]
  - HYPOVENTILATION [None]
  - IMPAIRED WORK ABILITY [None]
  - LIVER FUNCTION TEST ABNORMAL [None]
  - METABOLIC ACIDOSIS [None]
  - MUSCLE INJURY [None]
  - MUSCLE SPASMS [None]
  - MUSCULOSKELETAL PAIN [None]
  - OEDEMA PERIPHERAL [None]
  - ORGAN FAILURE [None]
  - PAIN [None]
  - PAIN IN EXTREMITY [None]
  - PALPITATIONS [None]
  - PNEUMONIA [None]
  - RENAL FAILURE [None]
  - RENAL FAILURE ACUTE [None]
  - RHABDOMYOLYSIS [None]
  - SEPSIS SYNDROME [None]
  - SINUS ARRHYTHMIA [None]
  - THYROID DISORDER [None]
  - UNEVALUABLE EVENT [None]
  - VASOSPASM [None]
  - VENTRICULAR EXTRASYSTOLES [None]
  - WEIGHT INCREASED [None]
  - WHITE BLOOD CELL COUNT DECREASED [None]
